FAERS Safety Report 8607451-X (Version None)
Quarter: 2012Q3

REPORT INFORMATION
  Report Type: 
  Country: None (occurrence: None)
  Receive Date: 20120809
  Receipt Date: 20120809
  Transmission Date: 20120928
  Serious: Yes (Other)
  Sender: FDA-Public Use
  Company Number: None

PATIENT
  Age: 30 Year
  Sex: Male
  Weight: 115.5 kg

DRUGS (1)
  1. ZIPRASIDONE HCL [Suspect]
     Dosage: 60 MG EVERY DAY PO
     Route: 048
     Dates: start: 20111020, end: 20120131

REACTIONS (3)
  - LOSS OF CONSCIOUSNESS [None]
  - ROAD TRAFFIC ACCIDENT [None]
  - CONVULSION [None]
